FAERS Safety Report 5701840-9 (Version None)
Quarter: 2008Q2

REPORT INFORMATION
  Report Type: 
  Country: None (occurrence: None)
  Receive Date: 20080411
  Receipt Date: 20080411
  Transmission Date: 20081010
  Serious: Yes (Other)
  Sender: FDA-Public Use
  Company Number: None

PATIENT
  Age: 57 Year
  Sex: Female
  Weight: 65.32 kg

DRUGS (3)
  1. HEPARIN LOCK-FLUSH [Suspect]
     Indication: MALNUTRITION
     Dosage: FLUSH HICKMAN CATH WITH HEPARIN 100U/ML 5 ML AFTER SALINE FLUSH DAILY
     Dates: start: 20080125, end: 20080327
  2. HEPARIN LOCK-FLUSH [Suspect]
  3. HEPARIN LOCK-FLUSH [Suspect]

REACTIONS (2)
  - NAUSEA [None]
  - PHARMACEUTICAL PRODUCT COMPLAINT [None]
